FAERS Safety Report 6071322-6 (Version None)
Quarter: 2009Q1

REPORT INFORMATION
  Report Type: 
  Country: None (occurrence: None)
  Receive Date: 20090205
  Receipt Date: 20090120
  Transmission Date: 20090719
  Serious: No
  Sender: FDA-Public Use
  Company Number: 151054

PATIENT
  Sex: Female

DRUGS (2)
  1. SODIUM CHLORIDE INJ [Suspect]
     Indication: MEDICATION DILUTION
     Dosage: 10 CUBIC CM, SUBCUTANEOUS
     Route: 058
     Dates: start: 20081229, end: 20081229
  2. (LIDOCAINE W/EPINEPHRINE /00056401/) [Concomitant]

REACTIONS (7)
  - EYE SWELLING [None]
  - OPERATIVE HAEMORRHAGE [None]
  - POST PROCEDURAL COMPLICATION [None]
  - POST PROCEDURAL INFECTION [None]
  - SEROMA [None]
  - SKIN NECROSIS [None]
  - WOUND INFECTION STAPHYLOCOCCAL [None]
